FAERS Safety Report 15042268 (Version 1)
Quarter: 2018Q2

REPORT INFORMATION
  Report Type: Spontaneous
  Country: US (occurrence: US)
  Receive Date: 20180621
  Receipt Date: 20180621
  Transmission Date: 20180711
  Serious: Yes (Life-Threatening)
  Sender: FDA-Public Use
  Company Number: US-EMD SERONO-9031795

PATIENT
  Sex: Female
  Weight: 85 kg

DRUGS (1)
  1. REBIF [Suspect]
     Active Substance: INTERFERON BETA-1A
     Indication: MULTIPLE SCLEROSIS
     Route: 058
     Dates: start: 2012

REACTIONS (2)
  - Maternal exposure during pregnancy [Recovered/Resolved]
  - Ectopic pregnancy [Recovered/Resolved]
